FAERS Safety Report 8573598 (Version 4)
Quarter: 2013Q3

REPORT INFORMATION
  Report Type: Spontaneous
  Country: US (occurrence: US)
  Receive Date: 20120522
  Receipt Date: 20130724
  Transmission Date: 20140515
  Serious: Yes (Hospitalization, Other)
  Sender: FDA-Public Use
  Company Number: US-ROCHE-783735

PATIENT
  Sex: Male
  Weight: 52.21 kg

DRUGS (10)
  1. ACCUTANE [Suspect]
     Indication: ACNE
     Route: 065
     Dates: start: 200012, end: 200106
  2. ROWASA [Concomitant]
  3. BENTYL [Concomitant]
  4. PREDNISONE [Concomitant]
  5. PENTASA [Concomitant]
  6. DIPHENOXYLATE [Concomitant]
  7. COLAZAL [Concomitant]
  8. PURINETHOL [Concomitant]
  9. NEXIUM [Concomitant]
  10. COLYTE [Concomitant]

REACTIONS (4)
  - Colitis ulcerative [Unknown]
  - Inflammatory bowel disease [Unknown]
  - Stress [Unknown]
  - Depression [Unknown]
